FAERS Safety Report 24527311 (Version 1)
Quarter: 2024Q4

REPORT INFORMATION
  Report Type: Report from Study
  Country: US (occurrence: US)
  Receive Date: 20241021
  Receipt Date: 20241021
  Transmission Date: 20250115
  Serious: No
  Sender: ROCHE
  Company Number: US-ROCHE-2755578

PATIENT
  Age: 28 Year
  Sex: Female

DRUGS (4)
  1. COTELLIC [Suspect]
     Active Substance: COBIMETINIB
     Indication: Langerhans^ cell histiocytosis
     Dosage: 60 MG 3 TABLETS ONCE A DAY
     Route: 048
     Dates: start: 20201010
  2. COTELLIC [Suspect]
     Active Substance: COBIMETINIB
     Dosage: TAKE 2 TABLET (40 MG TOTAL) BY MOUTH DAILY TAKE WITH OR WITHOUT FOOD
     Route: 048
     Dates: start: 20210728
  3. COTELLIC [Suspect]
     Active Substance: COBIMETINIB
     Dosage: 40MG ONCE A DAY FROM DAY 1-21 IN 28 DAY CYCLE
     Route: 048
  4. COTELLIC [Suspect]
     Active Substance: COBIMETINIB
     Dosage: TAKE 1 TABLET BY MOUTH DAILY ON DAYS 1-21 OF EVERY 28 DAY CYCLE
     Route: 048

REACTIONS (5)
  - Off label use [Unknown]
  - Circumstance or information capable of leading to medication error [Unknown]
  - Memory impairment [Unknown]
  - Product dispensing error [Unknown]
  - Product prescribing error [Unknown]

NARRATIVE: CASE EVENT DATE: 20201010
